FAERS Safety Report 10350091 (Version 2)
Quarter: 2014Q3

REPORT INFORMATION
  Report Type: Spontaneous
  Country: US (occurrence: US)
  Receive Date: 20140730
  Receipt Date: 20140821
  Transmission Date: 20150326
  Serious: Yes (Other)
  Sender: FDA-Public Use
  Company Number: 2014SP002371

PATIENT
  Age: 44 Year
  Sex: Female
  Weight: 73 kg

DRUGS (1)
  1. LATUDA [Suspect]
     Active Substance: LURASIDONE HYDROCHLORIDE
     Indication: BIPOLAR DISORDER
     Route: 048

REACTIONS (1)
  - Anaphylactic reaction [Recovered/Resolved]
